FAERS Safety Report 6256595-9 (Version None)
Quarter: 2009Q3

REPORT INFORMATION
  Report Type: 
  Country: None (occurrence: None)
  Receive Date: 20090706
  Receipt Date: 20090625
  Transmission Date: 20100115
  Serious: Yes (Hospitalization)
  Sender: FDA-Public Use
  Company Number: DE-JNJFOC-20090608577

PATIENT
  Age: 45 Year
  Sex: Male

DRUGS (14)
  1. HALDOL [Suspect]
     Route: 048
  2. HALDOL [Suspect]
     Route: 048
  3. HALDOL [Suspect]
     Route: 048
  4. HALDOL [Suspect]
     Route: 048
  5. HALDOL [Suspect]
     Dosage: 7 MG - 11 MG
     Route: 048
  6. HALDOL [Suspect]
     Indication: DRUG USE FOR UNKNOWN INDICATION
     Route: 048
  7. RISPERDAL [Suspect]
     Route: 048
  8. RISPERDAL [Suspect]
     Indication: DRUG USE FOR UNKNOWN INDICATION
     Route: 048
  9. DIAZEPAM [Interacting]
     Route: 048
  10. DIAZEPAM [Interacting]
     Route: 048
  11. DIAZEPAM [Interacting]
     Route: 048
  12. DIAZEPAM [Interacting]
     Route: 048
  13. DIAZEPAM [Interacting]
     Route: 048
  14. DIAZEPAM [Interacting]
     Indication: DRUG USE FOR UNKNOWN INDICATION
     Route: 048

REACTIONS (2)
  - DRUG INTERACTION [None]
  - URINARY INCONTINENCE [None]
